FAERS Safety Report 8255799 (Version 2)
Quarter: 2012Q4

REPORT INFORMATION
  Report Type: 
  Country: US (occurrence: US)
  Receive Date: 20111119
  Receipt Date: 20121102
  Transmission Date: 20130627
  Serious: Yes (Other)
  Sender: FDA-Public Use
  Company Number: US-ASTRAZENECA-2011SE69060

PATIENT
  Age: 50 Year
  Sex: Female

DRUGS (3)
  1. NEXIUM [Suspect]
     Route: 048
  2. SYMBICORT [Concomitant]
  3. WARFARIN [Concomitant]

REACTIONS (5)
  - Spinal column stenosis [Unknown]
  - Thrombosis [Unknown]
  - Intervertebral disc disorder [Unknown]
  - Anxiety [Unknown]
  - Chronic obstructive pulmonary disease [Unknown]
